FAERS Safety Report 9113492 (Version 1)
Quarter: 2013Q1

REPORT INFORMATION
  Report Type: Spontaneous
  Country: US (occurrence: US)
  Receive Date: 20130129
  Receipt Date: 20130129
  Transmission Date: 20140127
  Serious: Yes (Other)
  Sender: FDA-Public Use
  Company Number: US-009507513-1301USA003655

PATIENT
  Age: 26 Year
  Sex: Female

DRUGS (11)
  1. SINGULAIR [Suspect]
     Indication: ASTHMA
     Dosage: 10 MG, QD
  2. GENERAL ANESTHESIA [Suspect]
  3. MAGNESIUM SULFATE [Suspect]
  4. DIAZEPAM [Suspect]
  5. PHYTONADIONE [Suspect]
  6. HEPARIN CALCIUM [Suspect]
  7. PLAVIX [Suspect]
  8. PHENYTOIN [Suspect]
  9. THEOPHYLLINE [Suspect]
  10. PREDNISOLONE [Suspect]
  11. FLUTICASONE PROPIONATE (+) SALMETEROL XINAFOATE [Suspect]

REACTIONS (11)
  - Sputum retention [Unknown]
  - Pyrexia [Unknown]
  - Pneumonia aspiration [Unknown]
  - Placental infarction [Unknown]
  - Placental disorder [Unknown]
  - Oxygen saturation decreased [Unknown]
  - Maternal exposure during pregnancy [Unknown]
  - Grand mal convulsion [Unknown]
  - Caesarean section [Unknown]
  - Atelectasis [Unknown]
  - Anaemia [Unknown]
